FAERS Safety Report 14116075 (Version 2)
Quarter: 2017Q4

REPORT INFORMATION
  Report Type: Spontaneous
  Country: US (occurrence: US)
  Receive Date: 20171023
  Receipt Date: 20171122
  Transmission Date: 20180321
  Serious: Yes (Other)
  Sender: FDA-Public Use
  Company Number: US-009507513-1710USA009273

PATIENT
  Age: 48 Year
  Sex: Male

DRUGS (3)
  1. CELESTONE SOLUSPAN [Suspect]
     Active Substance: BETAMETHASONE ACETATE\BETAMETHASONE SODIUM PHOSPHATE
     Indication: EPIDURAL INJECTION
  2. CELESTONE SOLUSPAN [Suspect]
     Active Substance: BETAMETHASONE ACETATE\BETAMETHASONE SODIUM PHOSPHATE
     Indication: NERVE ROOT COMPRESSION
     Dosage: 2 ML, ONCE (STRENGTH 6 MG/ML)
     Route: 008
  3. BUPIVACAINE. [Suspect]
     Active Substance: BUPIVACAINE
     Indication: NERVE ROOT COMPRESSION
     Dosage: 4 ML, ONCE
     Route: 008

REACTIONS (1)
  - Paraparesis [Recovering/Resolving]
